FAERS Safety Report 23842479 (Version 1)
Quarter: 2024Q2

REPORT INFORMATION
  Report Type: Spontaneous
  Country: US (occurrence: US)
  Receive Date: 20240510
  Receipt Date: 20240510
  Transmission Date: 20240716
  Serious: No
  Sender: FDA-Public Use
  Company Number: US-BAUSCH-BL-2024-005387

PATIENT
  Age: 87 Year
  Sex: Male

DRUGS (1)
  1. IPRATROPIUM BROMIDE [Suspect]
     Active Substance: IPRATROPIUM BROMIDE\IPRATROPIUM BROMIDE ANHYDROUS
     Indication: Nasal disorder
     Dosage: 1 SPRAY IN EACH NOSTRIL TWICE DAILY.
     Route: 045
     Dates: end: 202403

REACTIONS (4)
  - Rhinorrhoea [Unknown]
  - Product prescribing error [Unknown]
  - Device malfunction [Unknown]
  - Therapy interrupted [Unknown]

NARRATIVE: CASE EVENT DATE: 20240301
